FAERS Safety Report 14156142 (Version 2)
Quarter: 2017Q4

REPORT INFORMATION
  Report Type: Spontaneous
  Country: US (occurrence: US)
  Receive Date: 20171103
  Receipt Date: 20171211
  Transmission Date: 20180321
  Serious: No
  Sender: FDA-Public Use
  Company Number: PHEH2017US034791

PATIENT
  Sex: Female
  Weight: 64 kg

DRUGS (2)
  1. LIDOCAINE AND PRILOCAINE [Suspect]
     Active Substance: LIDOCAINE\PRILOCAINE
     Indication: FISTULA
     Dosage: 1 DF, QW3
     Route: 065
     Dates: start: 20171019
  2. LIDOCAINE AND PRILOCAINE [Suspect]
     Active Substance: LIDOCAINE\PRILOCAINE
     Indication: DIALYSIS

REACTIONS (1)
  - Drug ineffective [Not Recovered/Not Resolved]
